FAERS Safety Report 21992502 (Version 4)
Quarter: 2023Q2

REPORT INFORMATION
  Report Type: Report from Study
  Country: US (occurrence: US)
  Receive Date: 20230215
  Receipt Date: 20230417
  Transmission Date: 20230722
  Serious: Yes (Other)
  Sender: FDA-Public Use
  Company Number: US-ABBVIE-4306692

PATIENT
  Sex: Male
  Weight: 88 kg

DRUGS (43)
  1. VENCLEXTA [Suspect]
     Active Substance: VENETOCLAX
     Indication: Chronic lymphocytic leukaemia
     Dosage: LINE OF THERAPY/FORM STRENGTH: 100 MG
     Route: 048
     Dates: start: 20230110
  2. VENCLEXTA [Suspect]
     Active Substance: VENETOCLAX
     Indication: Chronic lymphocytic leukaemia
     Dosage: FORM STRENGTH: 100 MG?EVENT ONSET DATE FOR WEIGHT LOSS- 2021
     Route: 048
     Dates: start: 20210901
  3. VENCLEXTA [Suspect]
     Active Substance: VENETOCLAX
     Indication: Chronic lymphocytic leukaemia
     Dosage: LINE OF THERAPY/FORM STRENGTH: 100 MG
     Route: 048
     Dates: start: 2022
  4. VENCLEXTA [Suspect]
     Active Substance: VENETOCLAX
     Indication: Chronic lymphocytic leukaemia
     Dosage: FORM STRENGTH: 100 MG
     Route: 048
     Dates: start: 2022
  5. MD-GASTROVIEW [Concomitant]
     Active Substance: DIATRIZOATE MEGLUMINE\DIATRIZOATE SODIUM
     Indication: Product used for unknown indication
     Dosage: 30ML
     Route: 048
     Dates: start: 20221116
  6. SODIUM CHLORIDE [Concomitant]
     Active Substance: SODIUM CHLORIDE
     Indication: Product used for unknown indication
     Dosage: NACL FLUSH-0.9% 10 ML
     Dates: start: 20180306
  7. SODIUM CHLORIDE [Concomitant]
     Active Substance: SODIUM CHLORIDE
     Indication: Product used for unknown indication
     Dosage: NACL FLUSH-0.9% 10 ML?FREQUENCY TEXT: 30ML FLUSH ONCE
     Dates: start: 20180306
  8. SODIUM CHLORIDE [Concomitant]
     Active Substance: SODIUM CHLORIDE
     Indication: Product used for unknown indication
     Dosage: NACL FLUSH-0.9% 10 ML
  9. SODIUM CHLORIDE [Concomitant]
     Active Substance: SODIUM CHLORIDE
     Indication: Product used for unknown indication
     Dosage: NACL FLUSH-0.9%  30 ML
  10. SODIUM CHLORIDE [Concomitant]
     Active Substance: SODIUM CHLORIDE
     Indication: Product used for unknown indication
     Dosage: NACL FLUSH-0.9% 10 ML?FREQUENCY TEXT: 10ML FLUSH ONCE
     Dates: start: 20170202
  11. VINCRISTINE SULFATE [Concomitant]
     Active Substance: VINCRISTINE SULFATE
     Indication: Immune thrombocytopenia
     Dates: start: 2014
  12. VINCRISTINE SULFATE [Concomitant]
     Active Substance: VINCRISTINE SULFATE
     Indication: Immune thrombocytopenia
     Dosage: 2 CYCLE
     Dates: start: 2021
  13. INFLUENZA VIRUS VACCINE [Concomitant]
     Active Substance: INFLUENZA VIRUS VACCINE
     Indication: Product used for unknown indication
     Dosage: 0.5 ML
     Dates: start: 20161220
  14. AZITHROMYCIN [Concomitant]
     Active Substance: AZITHROMYCIN
     Indication: Product used for unknown indication
  15. CYCLOPHOSPHAMIDE [Concomitant]
     Active Substance: CYCLOPHOSPHAMIDE
     Indication: Product used for unknown indication
     Dates: start: 2014
  16. CYCLOPHOSPHAMIDE [Concomitant]
     Active Substance: CYCLOPHOSPHAMIDE
     Indication: Product used for unknown indication
     Dosage: 2 CYCLE
     Dates: start: 2021
  17. NORVASC [Concomitant]
     Active Substance: AMLODIPINE BESYLATE
     Indication: Product used for unknown indication
     Route: 048
  18. RITUXAN [Concomitant]
     Active Substance: RITUXIMAB
     Indication: Product used for unknown indication
     Dosage: WEEKLY 4 FROM MAY THROUGH JUNE OF 2017
     Dates: start: 2014
  19. RITUXAN [Concomitant]
     Active Substance: RITUXIMAB
     Indication: Product used for unknown indication
     Dates: start: 20170504, end: 201706
  20. RITUXAN [Concomitant]
     Active Substance: RITUXIMAB
     Indication: Product used for unknown indication
     Dates: start: 20210901
  21. LEVOTHYROXINE [Concomitant]
     Active Substance: LEVOTHYROXINE
     Indication: Product used for unknown indication
     Route: 048
  22. ALLOPURINOL [Concomitant]
     Active Substance: ALLOPURINOL
     Indication: Product used for unknown indication
     Route: 065
  23. CATAPRES-TTS [Concomitant]
     Active Substance: CLONIDINE
     Indication: Product used for unknown indication
     Dosage: PATCH- 0.1MG/24 HR TRANSDERMAL FILM, EXTENDED RELEASE?FREQUENCY TEXT: 1 PATCHES TRANSDERMAL, EVER...
  24. CILGAVIMAB\TIXAGEVIMAB [Concomitant]
     Active Substance: CILGAVIMAB\TIXAGEVIMAB
     Indication: Product used for unknown indication
     Route: 030
     Dates: start: 20220927
  25. GADAVIST [Concomitant]
     Active Substance: GADOBUTROL
     Indication: Product used for unknown indication
     Dosage: 10,4ML IV PUSH INJECTABLE ONCE
     Dates: start: 20170202
  26. GADAVIST [Concomitant]
     Active Substance: GADOBUTROL
     Indication: Product used for unknown indication
     Dosage: 10,4ML IV PUSH INJECTABLE ONCE
     Dates: start: 20170202
  27. GADAVIST [Concomitant]
     Active Substance: GADOBUTROL
     Indication: Product used for unknown indication
     Route: 042
     Dates: start: 20180306
  28. GADAVIST [Concomitant]
     Active Substance: GADOBUTROL
     Indication: Product used for unknown indication
     Route: 042
     Dates: start: 20180306
  29. GADAVIST [Concomitant]
     Active Substance: GADOBUTROL
     Indication: Product used for unknown indication
     Route: 042
     Dates: start: 20180306
  30. GADAVIST [Concomitant]
     Active Substance: GADOBUTROL
     Indication: Product used for unknown indication
     Dosage: 10,4ML IV PUSH INJECTABLE ONCE
     Dates: start: 20170202
  31. MEDROL [Concomitant]
     Active Substance: METHYLPREDNISOLONE
     Indication: Product used for unknown indication
     Dosage: FREQUENCY TEXT: TAKE AS DIRECTED ON DOSE PACK FOR 6 DAYS
  32. CIPRODEX [Concomitant]
     Active Substance: CIPROFLOXACIN HYDROCHLORIDE\DEXAMETHASONE
     Indication: Product used for unknown indication
     Dosage: OTIC SUSPENSION-0.3%-0.1%
     Route: 001
  33. CIPRODEX [Concomitant]
     Active Substance: CIPROFLOXACIN HYDROCHLORIDE\DEXAMETHASONE
     Indication: Product used for unknown indication
     Dosage: OTIC SUSPENSION-0.3%-0.1%
     Route: 001
  34. CIPRODEX [Concomitant]
     Active Substance: CIPROFLOXACIN HYDROCHLORIDE\DEXAMETHASONE
     Indication: Product used for unknown indication
     Dosage: OTIC SUSPENSION-0.3%-0.1%?FREQUENCY TEXT: 4 DROP, EAR-RIGHT, BID FOR 7 DAYS
     Route: 001
  35. TEGRETOL [Concomitant]
     Active Substance: CARBAMAZEPINE
     Indication: Product used for unknown indication
     Dosage: XR
     Route: 048
  36. LASIX [Concomitant]
     Active Substance: FUROSEMIDE
     Indication: Product used for unknown indication
  37. CYCLOBENZAPRINE [Concomitant]
     Active Substance: CYCLOBENZAPRINE
     Indication: Product used for unknown indication
     Dosage: FREQUENCY TEXT: 5-1 TABS ORAL DAILY AT BEDTIME
     Route: 048
  38. SYNTHROID [Concomitant]
     Active Substance: LEVOTHYROXINE SODIUM
     Indication: Product used for unknown indication
  39. PHENYTOIN [Concomitant]
     Active Substance: PHENYTOIN
     Indication: Seizure
     Route: 048
  40. Covid-19 vaccine [Concomitant]
     Indication: COVID-19 immunisation
     Dosage: TIME INTERVAL: TOTAL: 0.5 ML, 0.5ML ONCE,?SARS-COV-2 (COVID-19) AD26 VACCINE RECOMBINANT
     Route: 030
     Dates: start: 20210304, end: 20210304
  41. METOPROLOL TARTRATE [Concomitant]
     Active Substance: METOPROLOL TARTRATE
     Indication: Product used for unknown indication
     Route: 048
  42. PREDNISONE [Concomitant]
     Active Substance: PREDNISONE
     Indication: Product used for unknown indication
     Dosage: 2 CYCLE
     Dates: start: 2021
  43. FLUDARABINE [Concomitant]
     Active Substance: FLUDARABINE PHOSPHATE
     Indication: Product used for unknown indication
     Dosage: 1 CYCLE

REACTIONS (8)
  - Lymphocytic infiltration [Recovered/Resolved]
  - Weight decreased [Recovered/Resolved]
  - Rash pruritic [Recovered/Resolved]
  - Fall [Recovered/Resolved]
  - Spleen disorder [Unknown]
  - Lymphocyte count decreased [Unknown]
  - Unevaluable event [Unknown]
  - Balance disorder [Unknown]

NARRATIVE: CASE EVENT DATE: 20220101
